FAERS Safety Report 5363538-9 (Version None)
Quarter: 2007Q2

REPORT INFORMATION
  Report Type: 
  Country: None (occurrence: None)
  Receive Date: 20070618
  Receipt Date: 20070618
  Transmission Date: 20071010
  Serious: Yes (Hospitalization, Other)
  Sender: FDA-Public Use
  Company Number: None

PATIENT
  Sex: Male
  Weight: 124.7392 kg

DRUGS (1)
  1. COLGATE  0.76 SODIUM MONOFLUOROPHSPHAT COLGATE [Suspect]
     Indication: DENTAL DISORDER PROPHYLAXIS
     Dosage: ONE TOOTH BRUSH FULL  2 TO 3 TIMES DAILY  PO
     Route: 048
     Dates: start: 20070101, end: 20070615

REACTIONS (8)
  - ABDOMINAL PAIN UPPER [None]
  - DIZZINESS [None]
  - DYSGEUSIA [None]
  - GASTRITIS [None]
  - NAUSEA [None]
  - PHARMACEUTICAL PRODUCT COUNTERFEIT [None]
  - TONGUE DISCOLOURATION [None]
  - TREMOR [None]
